FAERS Safety Report 6197957-8 (Version None)
Quarter: 2009Q2

REPORT INFORMATION
  Report Type: 
  Country: None (occurrence: None)
  Receive Date: 20090521
  Receipt Date: 20090511
  Transmission Date: 20091009
  Serious: Yes (Hospitalization)
  Sender: FDA-Public Use
  Company Number: B0574263A

PATIENT
  Age: 60 Year
  Sex: Male
  Weight: 53 kg

DRUGS (4)
  1. SALMETEROL [Suspect]
     Indication: ASTHMA
     Route: 055
  2. THEOPHYLLINE [Concomitant]
     Indication: ASTHMA
     Route: 048
  3. BECLOMETASONE DIPROPIONATE [Concomitant]
     Indication: ASTHMA
     Route: 065
  4. SALBUTAMOL SULPHATE [Concomitant]
     Route: 065

REACTIONS (26)
  - ABDOMINAL PAIN UPPER [None]
  - ALLERGIC GRANULOMATOUS ANGIITIS [None]
  - ARTHRALGIA [None]
  - ASTHMA [None]
  - BRONCHIAL WALL THICKENING [None]
  - COLONIC POLYP [None]
  - CONDUCTIVE DEAFNESS [None]
  - CONJUNCTIVAL HYPERAEMIA [None]
  - COUGH [None]
  - DECREASED APPETITE [None]
  - DYSPNOEA [None]
  - EAR DISCOMFORT [None]
  - EOSINOPHIL COUNT INCREASED [None]
  - EYELID OEDEMA [None]
  - GASTRITIS ATROPHIC [None]
  - HYPERTROPHY [None]
  - HYPOAESTHESIA [None]
  - INFLAMMATION [None]
  - LUNG INFILTRATION [None]
  - MONONEUROPATHY MULTIPLEX [None]
  - MUSCULAR WEAKNESS [None]
  - OTITIS MEDIA [None]
  - PARAESTHESIA [None]
  - PYREXIA [None]
  - SINUSITIS [None]
  - WHITE BLOOD CELL COUNT INCREASED [None]
